FAERS Safety Report 5517416-2 (Version None)
Quarter: 2007Q4

REPORT INFORMATION
  Report Type: 
  Country: None (occurrence: None)
  Receive Date: 20071114
  Receipt Date: 20071106
  Transmission Date: 20080405
  Serious: Yes (Life-Threatening, Hospitalization)
  Sender: FDA-Public Use
  Company Number: DE-ABBOTT-07P-062-0423558-00

PATIENT
  Sex: Male
  Weight: 80 kg

DRUGS (3)
  1. KLACID FILMTABS [Suspect]
     Indication: BRONCHITIS
     Route: 048
     Dates: start: 20071004, end: 20071008
  2. MOXIFLOXACIN HYDROCHLORIDE [Suspect]
     Indication: BRONCHITIS
     Route: 048
     Dates: start: 20071008, end: 20071014
  3. SYMBICORT TURBOHALER [Concomitant]
     Indication: ASTHMA
     Route: 055

REACTIONS (2)
  - HAEMATOMA [None]
  - THROMBOCYTOPENIA [None]
